FAERS Safety Report 25218681 (Version 2)
Quarter: 2025Q2

REPORT INFORMATION
  Report Type: Spontaneous
  Country: IN (occurrence: IN)
  Receive Date: 20250421
  Receipt Date: 20250514
  Transmission Date: 20250716
  Serious: Yes (Death, Life-Threatening, Hospitalization, Other)
  Sender: RANBAXY
  Company Number: IN-SUN PHARMACEUTICAL INDUSTRIES LTD-2025R1-504547

PATIENT
  Age: 22 Year
  Sex: Female

DRUGS (1)
  1. DEXAMETHASONE [Suspect]
     Active Substance: DEXAMETHASONE
     Indication: Deafness bilateral
     Route: 065

REACTIONS (3)
  - Cardio-respiratory arrest [Fatal]
  - Condition aggravated [Fatal]
  - Respiratory failure [Fatal]
